FAERS Safety Report 20443472 (Version 2)
Quarter: 2022Q1

REPORT INFORMATION
  Report Type: Spontaneous
  Country: JP (occurrence: JP)
  Receive Date: 20220208
  Receipt Date: 20220307
  Transmission Date: 20220424
  Serious: Yes (Hospitalization)
  Sender: FDA-Public Use
  Company Number: JP-JNJJAKJPN-J22006357

PATIENT
  Age: 78 Year
  Sex: Male

DRUGS (2)
  1. STELARA [Suspect]
     Active Substance: USTEKINUMAB
     Indication: Crohn^s disease
     Dosage: DOSE UNKNOWN
     Route: 042
     Dates: start: 202007
  2. STELARA [Suspect]
     Active Substance: USTEKINUMAB
     Route: 058
     Dates: end: 20220128

REACTIONS (3)
  - Renal impairment [Recovered/Resolved]
  - Anaemia [Not Recovered/Not Resolved]
  - Lymphocyte count decreased [Recovered/Resolved]

NARRATIVE: CASE EVENT DATE: 20220128
